FAERS Safety Report 9469758 (Version 2)
Quarter: 2013Q3

REPORT INFORMATION
  Report Type: Report from Study
  Country: CA (occurrence: CA)
  Receive Date: 20130822
  Receipt Date: 20130822
  Transmission Date: 20140515
  Serious: Yes (Other)
  Sender: FDA-Public Use
  Company Number: CA-JNJFOC-20130802016

PATIENT
  Age: 43 Year
  Sex: Male
  Weight: 85.1 kg

DRUGS (7)
  1. REMICADE [Suspect]
     Indication: CROHN^S DISEASE
     Route: 042
     Dates: start: 20111020
  2. IMURAN [Concomitant]
     Route: 065
  3. FOLIC ACID [Concomitant]
     Route: 065
  4. WARFARIN [Concomitant]
     Route: 065
  5. IMODIUM [Concomitant]
     Route: 065
  6. LOMOTIL [Concomitant]
     Route: 065
  7. TRIIODOTHYRONINE [Concomitant]
     Route: 065

REACTIONS (2)
  - Enterostomy [Unknown]
  - Stoma site irritation [Recovering/Resolving]
